FAERS Safety Report 21286596 (Version 1)
Quarter: 2022Q3

REPORT INFORMATION
  Report Type: Spontaneous
  Country: US (occurrence: None)
  Receive Date: 20220902
  Receipt Date: 20220902
  Transmission Date: 20221027
  Serious: No
  Sender: FDA-Public Use
  Company Number: None

PATIENT
  Age: 5 Year
  Sex: Female

DRUGS (1)
  1. TRIAMCINOLONE ACETONIDE [Suspect]
     Active Substance: TRIAMCINOLONE ACETONIDE
     Indication: Eczema
     Dosage: FREQUENCY : TWICE A DAY;?

REACTIONS (21)
  - Topical steroid withdrawal reaction [None]
  - Pain [None]
  - Discomfort [None]
  - Pain in extremity [None]
  - Gait inability [None]
  - Product use complaint [None]
  - Insomnia [None]
  - Chills [None]
  - Urticaria [None]
  - Skin wrinkling [None]
  - Skin exfoliation [None]
  - Rash [None]
  - Skin burning sensation [None]
  - Purpura [None]
  - Pain of skin [None]
  - Sensitive skin [None]
  - Periorbital swelling [None]
  - Illness [None]
  - Pruritus [None]
  - Scratch [None]
  - Skin laceration [None]

NARRATIVE: CASE EVENT DATE: 20220115
